FAERS Safety Report 11675703 (Version 1)
Quarter: 2015Q4

REPORT INFORMATION
  Report Type: Spontaneous
  Country: US (occurrence: US)
  Receive Date: 20151028
  Receipt Date: 20151028
  Transmission Date: 20160304
  Serious: No
  Sender: FDA-Public Use
  Company Number: US-ASTRAZENECA-2015SF02648

PATIENT
  Sex: Male

DRUGS (1)
  1. MOVANTIK [Suspect]
     Active Substance: NALOXEGOL OXALATE
     Dosage: UNKNOWN DOSE, UNKNOWN FREQUENCY
     Route: 048

REACTIONS (3)
  - Chills [Unknown]
  - Tremor [Unknown]
  - Drug withdrawal syndrome [Unknown]
